FAERS Safety Report 11119278 (Version 2)
Quarter: 2015Q2

REPORT INFORMATION
  Report Type: Spontaneous
  Country: US (occurrence: US)
  Receive Date: 20150518
  Receipt Date: 20150612
  Transmission Date: 20150821
  Serious: No
  Sender: FDA-Public Use
  Company Number: US-PFIZER INC-2015165667

PATIENT
  Age: 68 Year
  Sex: Male

DRUGS (21)
  1. TRAMADOL [Suspect]
     Active Substance: TRAMADOL
     Dosage: UNK
  2. BENADRYL [Concomitant]
     Active Substance: DIPHENHYDRAMINE HYDROCHLORIDE
     Dosage: ONE DAILY IN MORNING AND ONE AS NEEDED AT BEDTIME
     Dates: start: 20141121
  3. FLOMAX [Concomitant]
     Active Substance: TAMSULOSIN HYDROCHLORIDE
     Dosage: 0.4 MG CAPSULE TAKE 2 CAPSULE (S) EVERY DAY AT BEDTIME
     Route: 048
     Dates: start: 20150330
  4. MIRALAX [Concomitant]
     Active Substance: POLYETHYLENE GLYCOL 3350
     Dosage: 17 G DAILY; AS NEEDED
     Route: 048
     Dates: start: 20141027
  5. CALCIUM 600 PLUS VITAMIN D3 [Concomitant]
     Dosage: 1 DF, 2X/DAY
     Route: 048
     Dates: start: 20141027
  6. FORTEO [Concomitant]
     Active Substance: TERIPARATIDE
     Dosage: 0.08 ML, 1X/DAY
     Route: 058
     Dates: start: 20141027
  7. PRIMIDONE. [Concomitant]
     Active Substance: PRIMIDONE
     Dosage: 50 MG TABLET 2 TABLETS 3 TIMES A DAY
     Route: 048
     Dates: start: 20150416
  8. PROAIR HFA [Concomitant]
     Active Substance: ALBUTEROL SULFATE
     Indication: DYSPNOEA
     Dosage: TWO PUFFS EVERY 6 HOURS
     Dates: start: 20141229
  9. PROSCAR [Concomitant]
     Active Substance: FINASTERIDE
     Dosage: 5 MG, DAILY
     Route: 048
     Dates: start: 20150218
  10. VITAMIN D3 [Concomitant]
     Active Substance: CHOLECALCIFEROL
     Dosage: 1,000 UNIT TABLET: TAKE 1 TABLET(S) TWICE A DAY
     Route: 048
     Dates: start: 20141027
  11. CHANTIX [Suspect]
     Active Substance: VARENICLINE TARTRATE
     Indication: SMOKING CESSATION THERAPY
     Dosage: 1 MG, 2X/DAY
     Route: 048
  12. HYDROCODONE/ACETAMINOPHEN [Concomitant]
     Active Substance: ACETAMINOPHEN\HYDROCODONE
     Dosage: 1 DF, 4X/DAY
     Route: 048
     Dates: start: 20150508
  13. MAGNESIUM OXIDE. [Concomitant]
     Active Substance: MAGNESIUM OXIDE
     Dosage: 400 MG, 1X/DAY
     Route: 048
     Dates: start: 20141027
  14. WELLBUTRIN [Suspect]
     Active Substance: BUPROPION HYDROCHLORIDE
     Dosage: UNK
  15. OCUVITE [Concomitant]
     Active Substance: VITAMINS
     Dosage: UNK (ASCORBIC ACID 150MG, RETINOL5MG, TOCOPHEROL150MG)
     Route: 048
     Dates: start: 20141027
  16. ASA [Concomitant]
     Active Substance: ASPIRIN
     Dosage: 81 MG, 1X/DAY
     Route: 048
  17. LOSARTAN [Concomitant]
     Active Substance: LOSARTAN
     Dosage: 25 MG, 1X/DAY
     Route: 048
     Dates: start: 20150223
  18. ATENOLOL. [Concomitant]
     Active Substance: ATENOLOL
     Dosage: 25 MG, 1X/DAY
     Route: 048
  19. LIPITOR [Concomitant]
     Active Substance: ATORVASTATIN CALCIUM
     Dosage: 10 MG, 1X/DAY
     Route: 048
     Dates: start: 20150521
  20. LYRICA [Concomitant]
     Active Substance: PREGABALIN
     Dosage: 150 MG, 3X/DAY (TAKE 1 CAPSULE(S) 3 TIMES A DAY)
     Route: 048
     Dates: start: 20150507
  21. ACIDOPHILUS [Concomitant]
     Active Substance: LACTOBACILLUS ACIDOPHILUS
     Dosage: 2 DF, DAILY
     Route: 048
     Dates: start: 20141027

REACTIONS (2)
  - Drug hypersensitivity [Unknown]
  - Nightmare [Recovered/Resolved]
